FAERS Safety Report 8332040-4 (Version None)
Quarter: 2012Q2

REPORT INFORMATION
  Report Type: 
  Country: None (occurrence: None)
  Receive Date: 20120502
  Receipt Date: 20120425
  Transmission Date: 20120825
  Serious: Yes (Hospitalization)
  Sender: FDA-Public Use
  Company Number: GB-MERCK-1204USA03934

PATIENT
  Age: 84 Year
  Sex: Female
  Weight: 51 kg

DRUGS (6)
  1. OMEPRAZOLE [Concomitant]
     Indication: ULCER
     Route: 042
     Dates: start: 20111201, end: 20111215
  2. SIMVASTATIN [Concomitant]
     Indication: BLOOD CHOLESTEROL INCREASED
     Route: 065
     Dates: end: 20111218
  3. LANSOPRAZOLE [Concomitant]
     Indication: ULCER
     Route: 065
     Dates: start: 20111215
  4. CANCIDAS [Suspect]
     Indication: FUNGAL INFECTION
     Route: 042
     Dates: start: 20111212, end: 20111219
  5. ENOXAPARIN SODIUM [Concomitant]
     Indication: THROMBOSIS PROPHYLAXIS
     Route: 058
     Dates: start: 20111201
  6. FUROSEMIDE [Concomitant]
     Indication: OEDEMA
     Route: 048
     Dates: start: 20111208

REACTIONS (3)
  - ASPARTATE AMINOTRANSFERASE INCREASED [None]
  - PLATELET COUNT INCREASED [None]
  - ALANINE AMINOTRANSFERASE INCREASED [None]
